FAERS Safety Report 8616246-2 (Version None)
Quarter: 2012Q3

REPORT INFORMATION
  Report Type: 
  Country: None (occurrence: None)
  Receive Date: 20120823
  Receipt Date: 20120816
  Transmission Date: 20120928
  Serious: Yes (Other)
  Sender: FDA-Public Use
  Company Number: CA-ROCHE-1103892

PATIENT
  Sex: Female
  Weight: 79.45 kg

DRUGS (9)
  1. NAPROXEN [Concomitant]
  2. ARAVA [Concomitant]
  3. TEMAZEPAM [Concomitant]
  4. ROACTEMRA [Suspect]
     Indication: RHEUMATOID ARTHRITIS
     Route: 042
     Dates: start: 20120217
  5. SALVENT [Concomitant]
  6. FLUTICASONE PROPIONATE [Concomitant]
  7. RABEPRAZOLE SODIUM [Concomitant]
  8. FOLIC ACID [Concomitant]
  9. METHOTREXATE [Concomitant]

REACTIONS (2)
  - ASTHMA [None]
  - PRODUCTIVE COUGH [None]
